FAERS Safety Report 10169771 (Version 2)
Quarter: 2014Q2

REPORT INFORMATION
  Report Type: Report from Study
  Country: US (occurrence: US)
  Receive Date: 20140513
  Receipt Date: 20140604
  Transmission Date: 20141212
  Serious: Yes (Hospitalization, Other)
  Sender: FDA-Public Use
  Company Number: US-TEVA-481168USA

PATIENT
  Age: 61 Year
  Sex: Female

DRUGS (1)
  1. COPAXONE [Suspect]
     Indication: MULTIPLE SCLEROSIS
     Dates: start: 20020212

REACTIONS (5)
  - Multiple sclerosis relapse [Unknown]
  - Sepsis [Unknown]
  - Renal disorder [Unknown]
  - Pneumonia [Unknown]
  - Movement disorder [Unknown]
